FAERS Safety Report 15431138 (Version 4)
Quarter: 2019Q1

REPORT INFORMATION
  Report Type: Report from Study
  Country: US (occurrence: US)
  Receive Date: 20180926
  Receipt Date: 20190130
  Transmission Date: 20190417
  Serious: Yes (Other)
  Sender: FDA-Public Use
  Company Number: PHEH2018US039384

PATIENT
  Sex: Female

DRUGS (2)
  1. COSENTYX [Suspect]
     Active Substance: SECUKINUMAB
     Indication: PSORIASIS
     Dosage: 300 MG, QMO
     Route: 058
  2. COSENTYX [Suspect]
     Active Substance: SECUKINUMAB
     Indication: PSORIATIC ARTHROPATHY
     Dosage: 150 MG, QMO
     Route: 058

REACTIONS (7)
  - Feeling abnormal [Unknown]
  - Malaise [Unknown]
  - Gastric infection [Recovering/Resolving]
  - Nasopharyngitis [Unknown]
  - Motion sickness [Unknown]
  - Wrong technique in product usage process [Unknown]
  - Throat irritation [Unknown]
